FAERS Safety Report 10891601 (Version 2)
Quarter: 2015Q3

REPORT INFORMATION
  Report Type: Report from Study
  Country: KR (occurrence: KR)
  Receive Date: 20150306
  Receipt Date: 20150915
  Transmission Date: 20151125
  Serious: No
  Sender: FDA-Public Use
  Company Number: PHHY2015KR026747

PATIENT
  Age: 21 Year
  Sex: Male

DRUGS (7)
  1. TANTUM [Concomitant]
     Active Substance: BENZYDAMINE HYDROCHLORIDE
     Indication: PROPHYLAXIS
     Dosage: 100 ML, UNK
     Route: 050
     Dates: start: 20121122, end: 20121227
  2. ALLOPURINOL. [Concomitant]
     Active Substance: ALLOPURINOL
     Indication: GOUT
     Dosage: 300 MG, UNK
     Route: 048
     Dates: start: 20121122, end: 20130108
  3. ORAMEDY [Concomitant]
     Indication: PROPHYLAXIS
     Dosage: 1 OT, UNK
     Route: 062
     Dates: start: 20121207, end: 20121227
  4. FENTANYL. [Concomitant]
     Active Substance: FENTANYL
     Indication: HAEMATOMA
     Dosage: 25 UG, UNK
     Route: 062
     Dates: start: 20121203, end: 20121226
  5. TASIGNA [Suspect]
     Active Substance: NILOTINIB
     Indication: CHRONIC MYELOID LEUKAEMIA
     Dosage: 600 MG,QD
     Route: 048
     Dates: start: 20121215
  6. FOLIC ACID. [Concomitant]
     Active Substance: FOLIC ACID
     Indication: VITAMIN SUPPLEMENTATION
     Dosage: 2 MG, UNK
     Route: 048
     Dates: start: 20121122, end: 20130108
  7. B-COM [Concomitant]
     Indication: VITAMIN SUPPLEMENTATION
     Dosage: 1 OT, UNK
     Route: 048
     Dates: start: 20121123, end: 20130101

REACTIONS (1)
  - Blood bilirubin increased [Recovered/Resolved]

NARRATIVE: CASE EVENT DATE: 20130130
